FAERS Safety Report 23676211 (Version 1)
Quarter: 2024Q1

REPORT INFORMATION
  Report Type: Spontaneous
  Country: CA (occurrence: CA)
  Receive Date: 20240327
  Receipt Date: 20240327
  Transmission Date: 20240410
  Serious: Yes (Hospitalization)
  Sender: FDA-Public Use
  Company Number: CA-NOVITIUMPHARMA-2024CANVP00322

PATIENT
  Age: 17 Year
  Sex: Female

DRUGS (7)
  1. NAPROXEN [Suspect]
     Active Substance: NAPROXEN
     Indication: Injection site pain
  2. LIDOCAINE HYDROCHLORIDE [Suspect]
     Active Substance: LIDOCAINE HYDROCHLORIDE
     Indication: Injection site pain
     Route: 061
  3. DICLOFENAC [Concomitant]
     Active Substance: DICLOFENAC
     Indication: Injection site pain
     Route: 061
  4. LIDOCAINE\PRILOCAINE [Concomitant]
     Active Substance: LIDOCAINE\PRILOCAINE
     Indication: Injection site pain
     Route: 061
  5. KETAMINE [Concomitant]
     Active Substance: KETAMINE
     Indication: Injection site pain
     Route: 061
  6. DULOXETINE [Concomitant]
     Active Substance: DULOXETINE
     Indication: Injection site pain
  7. PREGABALIN [Concomitant]
     Active Substance: PREGABALIN
     Indication: Injection site pain

REACTIONS (1)
  - Drug ineffective [Unknown]
